FAERS Safety Report 5480163-X (Version None)
Quarter: 2007Q4

REPORT INFORMATION
  Report Type: 
  Country: None (occurrence: None)
  Receive Date: 20071009
  Receipt Date: 20070927
  Transmission Date: 20080405
  Serious: Yes (Hospitalization)
  Sender: FDA-Public Use
  Company Number: HU-SOLVAY-00207034273

PATIENT
  Age: 24079 Day
  Sex: Female

DRUGS (5)
  1. PERINDOPRIL ERBUMINE [Suspect]
     Indication: ILL-DEFINED DISORDER
     Dosage: DAILY DOSE: 8 MILLIGRAM(S)
     Route: 048
  2. PANITUMUMAB [Suspect]
     Indication: COLORECTAL CANCER
     Dosage: DAILY DOSE: 432 MILLIGRAM(S)
     Route: 042
     Dates: start: 20070301, end: 20070301
  3. FAMOTIDINE [Suspect]
     Indication: ILL-DEFINED DISORDER
     Dosage: DAILY DOSE: 40 MILLIGRAM(S)
     Route: 065
  4. TRAMADOL HCL [Suspect]
     Indication: ILL-DEFINED DISORDER
     Dosage: DAILY DOSE: 100 MILLIGRAM(S)
     Route: 065
  5. NAPROXEN [Suspect]
     Indication: ILL-DEFINED DISORDER
     Dosage: DAILY DOSE: 2 DOSAGE FORM
     Route: 048

REACTIONS (1)
  - VENOUS THROMBOSIS LIMB [None]
